FAERS Safety Report 15215980 (Version 1)
Quarter: 2018Q3

REPORT INFORMATION
  Report Type: Spontaneous
  Country: US (occurrence: US)
  Receive Date: 20180730
  Receipt Date: 20180730
  Transmission Date: 20181010
  Serious: Yes (Hospitalization)
  Sender: FDA-Public Use
  Company Number: US-GUERBET-US-20180190

PATIENT
  Age: 35 Year
  Sex: Female
  Weight: 74.8 kg

DRUGS (1)
  1. DOTAREM [Suspect]
     Active Substance: GADOTERATE MEGLUMINE
     Indication: NUCLEAR MAGNETIC RESONANCE IMAGING
     Route: 042
     Dates: start: 20180503, end: 20180503

REACTIONS (6)
  - Seizure like phenomena [Recovered/Resolved]
  - Vomiting [Recovered/Resolved]
  - Choking sensation [Recovered/Resolved]
  - Urinary incontinence [Recovered/Resolved]
  - Unresponsive to stimuli [Recovered/Resolved]
  - Dyspnoea [Recovered/Resolved]

NARRATIVE: CASE EVENT DATE: 20180503
